FAERS Safety Report 18563314 (Version 3)
Quarter: 2020Q4

REPORT INFORMATION
  Report Type: Report from Study
  Country: None (occurrence: US)
  Receive Date: 20201201
  Receipt Date: 20201231
  Transmission Date: 20210114
  Serious: Yes (Hospitalization)
  Sender: FDA-Public Use
  Company Number: US-ABBVIE-20K-163-3666201-00

PATIENT
  Age: 69 Year
  Sex: Male
  Weight: 86.26 kg

DRUGS (7)
  1. HUMIRA [Suspect]
     Active Substance: ADALIMUMAB
  2. ZOLOFT [Concomitant]
     Active Substance: SERTRALINE HYDROCHLORIDE
     Indication: PRODUCT USED FOR UNKNOWN INDICATION
  3. HUMIRA [Suspect]
     Active Substance: ADALIMUMAB
     Indication: COLITIS ULCERATIVE
     Route: 058
     Dates: start: 201812
  4. LEXAPRO [Concomitant]
     Active Substance: ESCITALOPRAM OXALATE
     Indication: PRODUCT USED FOR UNKNOWN INDICATION
  5. ALFUZOSIN [Concomitant]
     Active Substance: ALFUZOSIN
     Indication: PRODUCT USED FOR UNKNOWN INDICATION
  6. HUMIRA [Suspect]
     Active Substance: ADALIMUMAB
     Indication: COLITIS ULCERATIVE
     Dosage: CITRATE FREE
     Route: 058
     Dates: start: 201803
  7. HUMIRA [Suspect]
     Active Substance: ADALIMUMAB

REACTIONS (9)
  - Pneumonia [Recovered/Resolved]
  - Blood pressure decreased [Recovering/Resolving]
  - Mobility decreased [Recovering/Resolving]
  - Electrocardiogram abnormal [Recovering/Resolving]
  - Syncope [Recovering/Resolving]
  - Syncope [Recovered/Resolved]
  - Intestinal obstruction [Recovered/Resolved]
  - Fall [Recovered/Resolved]
  - Lower limb fracture [Recovering/Resolving]

NARRATIVE: CASE EVENT DATE: 20200514
